FAERS Safety Report 8112206-9 (Version None)
Quarter: 2012Q1

REPORT INFORMATION
  Report Type: 
  Country: None (occurrence: None)
  Receive Date: 20120203
  Receipt Date: 20120201
  Transmission Date: 20120608
  Serious: Yes (Other)
  Sender: FDA-Public Use
  Company Number: BR-ABBOTT-11P-020-0724884-00

PATIENT
  Sex: Female
  Weight: 59 kg

DRUGS (3)
  1. HUMIRA [Suspect]
     Indication: CROHN'S DISEASE
     Route: 058
     Dates: start: 20100401, end: 20101001
  2. REMICADE [Suspect]
     Indication: PRODUCT USED FOR UNKNOWN INDICATION
  3. MESALAMINE [Concomitant]
     Indication: ANTIINFLAMMATORY THERAPY
     Route: 048

REACTIONS (13)
  - ANAL FISTULA [None]
  - TREMOR [None]
  - ERYTHEMA [None]
  - ABDOMINAL PAIN UPPER [None]
  - CONSTIPATION [None]
  - HAEMATOCHEZIA [None]
  - NAUSEA [None]
  - DRUG INEFFECTIVE [None]
  - MALAISE [None]
  - GASTROINTESTINAL PAIN [None]
  - GASTRITIS [None]
  - FLATULENCE [None]
  - HYPOTENSION [None]
